FAERS Safety Report 8177434-5 (Version None)
Quarter: 2012Q1

REPORT INFORMATION
  Report Type: 
  Country: None (occurrence: None)
  Receive Date: 20120301
  Receipt Date: 20120224
  Transmission Date: 20120608
  Serious: Yes (Disabling, Other)
  Sender: FDA-Public Use
  Company Number: BR-BAYER-2012-018831

PATIENT
  Age: 54 Year
  Sex: Female

DRUGS (2)
  1. BETASERON [Suspect]
     Dosage: 1 ML, QOD
     Route: 058
     Dates: start: 20020101
  2. FLUOXETINE [Concomitant]
     Indication: DEPRESSION
     Dosage: 1 DF, QD
     Route: 048
     Dates: start: 20020101

REACTIONS (14)
  - INFLUENZA [None]
  - MUSCULOSKELETAL STIFFNESS [None]
  - GASTROOESOPHAGEAL REFLUX DISEASE [None]
  - FATIGUE [None]
  - MOVEMENT DISORDER [None]
  - BACK PAIN [None]
  - DEAFNESS UNILATERAL [None]
  - BLINDNESS [None]
  - DRY EYE [None]
  - INSOMNIA [None]
  - PARALYSIS [None]
  - OSTEOPOROSIS [None]
  - GASTRITIS [None]
  - IMMUNODEFICIENCY [None]
